FAERS Safety Report 16069546 (Version 1)
Quarter: 2019Q1

REPORT INFORMATION
  Report Type: Spontaneous
  Country: US (occurrence: US)
  Receive Date: 20190314
  Receipt Date: 20190314
  Transmission Date: 20190418
  Serious: Yes (Other)
  Sender: FDA-Public Use
  Company Number: US-ALEXION PHARMACEUTICALS INC.-A201903544

PATIENT
  Age: 2 Year
  Sex: Male

DRUGS (2)
  1. SOLIRIS [Suspect]
     Active Substance: ECULIZUMAB
     Indication: OFF LABEL USE
  2. SOLIRIS [Suspect]
     Active Substance: ECULIZUMAB
     Indication: THROMBOTIC MICROANGIOPATHY
     Dosage: 600 MG, UNK
     Route: 065

REACTIONS (10)
  - Post-traumatic stress disorder [Unknown]
  - Seizure [Not Recovered/Not Resolved]
  - Gait disturbance [Not Recovered/Not Resolved]
  - Off label use [Unknown]
  - Epilepsy [Not Recovered/Not Resolved]
  - Head lag abnormal [Not Recovered/Not Resolved]
  - Developmental regression [Not Recovered/Not Resolved]
  - Fall [Unknown]
  - Lennox-Gastaut syndrome [Unknown]
  - Generalised tonic-clonic seizure [Not Recovered/Not Resolved]
